FAERS Safety Report 18377994 (Version 2)
Quarter: 2020Q4

REPORT INFORMATION
  Report Type: Spontaneous
  Country: US (occurrence: US)
  Receive Date: 20201013
  Receipt Date: 20201113
  Transmission Date: 20210114
  Serious: Yes (Hospitalization, Other)
  Sender: FDA-Public Use
  Company Number: US-ALEXION-A202014746

PATIENT
  Sex: Female

DRUGS (1)
  1. KANUMA [Suspect]
     Active Substance: SEBELIPASE ALFA
     Indication: LYSOSOMAL ACID LIPASE DEFICIENCY
     Dosage: 5 MG/KG, UNK
     Route: 065
     Dates: start: 20170715

REACTIONS (3)
  - Biliary obstruction [Unknown]
  - Coagulation test abnormal [Unknown]
  - Biliary dilatation [Unknown]
